FAERS Safety Report 9013405 (Version 1)
Quarter: 2013Q1

REPORT INFORMATION
  Report Type: Spontaneous
  Country: US (occurrence: None)
  Receive Date: 20130107
  Receipt Date: 20130107
  Transmission Date: 20140127
  Serious: Yes (Hospitalization)
  Sender: FDA-Public Use
  Company Number: None

PATIENT
  Age: 67 Year
  Sex: Female
  Weight: 113.4 kg

DRUGS (4)
  1. DECITABINE [Suspect]
     Indication: MYELODYSPLASTIC SYNDROME
     Route: 058
     Dates: start: 20100914, end: 20101008
  2. ACYCLOVIR [Concomitant]
  3. LOVASTATIN [Concomitant]
  4. CIPROFLOXACINE [Concomitant]

REACTIONS (3)
  - Neutropenic sepsis [None]
  - Pneumonia [None]
  - Staphylococcus test positive [None]
